FAERS Safety Report 23317519 (Version 1)
Quarter: 2023Q4

REPORT INFORMATION
  Report Type: Spontaneous
  Country: US (occurrence: None)
  Receive Date: 20231219
  Receipt Date: 20231219
  Transmission Date: 20240109
  Serious: No
  Sender: FDA-Public Use
  Company Number: US-ROCHE-3443536

PATIENT
  Age: 4 Year
  Sex: Male
  Weight: 17 kg

DRUGS (2)
  1. HEMLIBRA [Suspect]
     Active Substance: EMICIZUMAB-KXWH
     Indication: Haemophilia
     Route: 058
     Dates: start: 20231011
  2. ELOCTATE [Concomitant]
     Active Substance: EFMOROCTOCOG ALFA
     Route: 042

REACTIONS (2)
  - Incorrect route of product administration [Unknown]
  - No adverse event [Unknown]

NARRATIVE: CASE EVENT DATE: 20231011
